FAERS Safety Report 6655499-7 (Version None)
Quarter: 2010Q1

REPORT INFORMATION
  Report Type: 
  Country: None (occurrence: None)
  Receive Date: 20100329
  Receipt Date: 20100318
  Transmission Date: 20100710
  Serious: Yes (Hospitalization, Other)
  Sender: FDA-Public Use
  Company Number: ES-ASTRAZENECA-2010SE12482

PATIENT
  Age: 68 Year
  Sex: Female

DRUGS (4)
  1. TENORMIN [Suspect]
     Indication: PHAEOCHROMOCYTOMA
     Route: 048
     Dates: start: 20100121, end: 20100125
  2. CARDURA [Interacting]
     Indication: PHAEOCHROMOCYTOMA
     Dosage: 4 MG (1/2 -0-1/2)
     Route: 048
     Dates: start: 20100121, end: 20100125
  3. LORAZEPAM [Concomitant]
     Indication: ANXIETY
     Route: 048
     Dates: end: 20100101
  4. CONDROSAN [Concomitant]
     Indication: OSTEOARTHRITIS
     Route: 048

REACTIONS (2)
  - DRUG INTERACTION [None]
  - SYNCOPE [None]
